FAERS Safety Report 9410442 (Version 2)
Quarter: 2013Q3

REPORT INFORMATION
  Report Type: Spontaneous
  Country: IL (occurrence: IL)
  Receive Date: 20130719
  Receipt Date: 20130724
  Transmission Date: 20140515
  Serious: Yes (Life-Threatening, Hospitalization)
  Sender: FDA-Public Use
  Company Number: IL-GLAXOSMITHKLINE-B0909094A

PATIENT
  Age: 50 Year
  Sex: Female

DRUGS (9)
  1. ZINACEF [Suspect]
     Indication: PROPHYLAXIS
     Dosage: 1.5MG PER DAY
     Route: 042
     Dates: start: 20130228, end: 20130228
  2. LUSTRAL [Concomitant]
     Indication: DEPRESSION
  3. CLOMIPRAMINE HYDROCHLORIDE [Concomitant]
     Indication: DEPRESSION
  4. MIDAZOLAM [Concomitant]
  5. FENTANYL [Concomitant]
  6. PROPOFOL [Concomitant]
  7. DEXAMETHASONE [Concomitant]
  8. ATRACURIUM [Concomitant]
  9. ROCURONIUM [Concomitant]

REACTIONS (1)
  - Anaphylactic shock [Unknown]
